FAERS Safety Report 17524081 (Version 1)
Quarter: 2020Q1

REPORT INFORMATION
  Report Type: Report from Study
  Country: NL (occurrence: NL)
  Receive Date: 20200310
  Receipt Date: 20200310
  Transmission Date: 20200409
  Serious: Yes (Other)
  Sender: FDA-Public Use
  Company Number: NL-MYLANLABS-2020M1025506

PATIENT
  Age: 22 Year
  Sex: Male

DRUGS (3)
  1. AZATHIOPRINE. [Suspect]
     Active Substance: AZATHIOPRINE
     Indication: INFLAMMATORY BOWEL DISEASE
     Dosage: 175MG, 1X/D
     Route: 048
     Dates: start: 20180425, end: 20180511
  2. MACROGOL [Concomitant]
     Active Substance: POLYETHYLENE GLYCOLS
     Dosage: 1ONBEKEND, ZN, MACROGOL POEDER V DRANK
     Route: 048
     Dates: start: 20150813
  3. MESALAZINE [Concomitant]
     Active Substance: MESALAMINE
     Dosage: 4G, 1X/D
     Route: 048
     Dates: start: 20170201

REACTIONS (1)
  - Pancreatitis [Recovered/Resolved]

NARRATIVE: CASE EVENT DATE: 20180511
